FAERS Safety Report 7349907-6 (Version None)
Quarter: 2011Q1

REPORT INFORMATION
  Report Type: 
  Country: None (occurrence: None)
  Receive Date: 20110314
  Receipt Date: 20110308
  Transmission Date: 20110831
  Serious: Yes (Life-Threatening, Hospitalization)
  Sender: FDA-Public Use
  Company Number: US-SANOFI-AVENTIS-2011SA014520

PATIENT
  Age: 77 Year
  Sex: Female

DRUGS (15)
  1. XOPENEX [Concomitant]
  2. FOSAMAX [Concomitant]
  3. CALCIUM [Concomitant]
  4. VAGIFEM [Concomitant]
  5. CARTIA /USA/ [Concomitant]
  6. ASPIRIN [Concomitant]
  7. LASIX [Concomitant]
  8. COLACE [Concomitant]
  9. FLOVENT [Concomitant]
  10. SPIRONOLACTONE [Concomitant]
  11. LIPITOR [Concomitant]
  12. MULTAQ [Suspect]
     Route: 048
     Dates: start: 20091101, end: 20110201
  13. SYNTHROID [Concomitant]
  14. MULTI-VITAMINS [Concomitant]
  15. VITAMIN D [Concomitant]

REACTIONS (9)
  - TORSADE DE POINTES [None]
  - CARDIAC ARREST [None]
  - VENTRICULAR FIBRILLATION [None]
  - PNEUMOTHORAX [None]
  - LEUKOCYTOSIS [None]
  - ELECTROCARDIOGRAM QT PROLONGED [None]
  - ATRIAL FIBRILLATION [None]
  - HYPOKALAEMIA [None]
  - RIB FRACTURE [None]
